FAERS Safety Report 7774941-1 (Version None)
Quarter: 2011Q3

REPORT INFORMATION
  Report Type: 
  Country: None (occurrence: None)
  Receive Date: 20110923
  Receipt Date: 20110920
  Transmission Date: 20111222
  Serious: Yes (Hospitalization)
  Sender: FDA-Public Use
  Company Number: BR-ABBOTT-11P-020-0853060-00

PATIENT
  Sex: Female

DRUGS (8)
  1. ATENOLOL [Concomitant]
     Indication: HYPERTENSION
     Dates: start: 20110401
  2. OMEPRAZOLE [Concomitant]
     Indication: GASTRITIS
  3. METHOTREXATE [Concomitant]
     Indication: RHEUMATOID ARTHRITIS
  4. SPIRONOLACTONE [Concomitant]
     Indication: HYPERTENSION
     Dates: start: 20110401
  5. CALCIUM CARBONATE [Concomitant]
     Indication: MUSCULOSKELETAL PAIN
  6. METFORMIN HCL [Concomitant]
     Indication: DIABETES MELLITUS
  7. HUMIRA [Suspect]
     Indication: RHEUMATOID ARTHRITIS
     Dates: start: 20110801
  8. LOSARTAN POTASSIUM [Concomitant]
     Indication: HYPERTENSION
     Dates: start: 20110401

REACTIONS (2)
  - BLOOD PRESSURE INCREASED [None]
  - NAIL INFECTION [None]
